FAERS Safety Report 7827996-X (Version None)
Quarter: 2011Q4

REPORT INFORMATION
  Report Type: 
  Country: None (occurrence: None)
  Receive Date: 20111020
  Receipt Date: 20111012
  Transmission Date: 20120403
  Serious: Yes (Hospitalization)
  Sender: FDA-Public Use
  Company Number: US-GLAXOSMITHKLINE-A0845494A

PATIENT
  Age: 45 Year
  Sex: Male
  Weight: 132.7 kg

DRUGS (11)
  1. ALTACE [Concomitant]
  2. HYDROCHLOROTHIAZIDE [Concomitant]
  3. GEMFIBROZIL [Concomitant]
  4. PREVACID [Concomitant]
  5. AVANDAMET [Suspect]
     Indication: TYPE 2 DIABETES MELLITUS
     Dosage: 1TAB PER DAY
     Route: 048
     Dates: start: 20040608, end: 20051025
  6. NEURONTIN [Concomitant]
  7. AMITRIPTYLINE HCL [Concomitant]
  8. BENICAR [Concomitant]
  9. ZOCOR [Concomitant]
  10. AVANDIA [Suspect]
     Indication: TYPE 2 DIABETES MELLITUS
     Dosage: 4MG SEE DOSAGE TEXT
     Route: 048
     Dates: start: 20000313, end: 20060301
  11. COREG [Concomitant]

REACTIONS (2)
  - CORONARY ARTERY STENOSIS [None]
  - CORONARY ARTERY DISEASE [None]
